FAERS Safety Report 15375760 (Version 2)
Quarter: 2018Q4

REPORT INFORMATION
  Report Type: Spontaneous
  Country: JP (occurrence: JP)
  Receive Date: 20180912
  Receipt Date: 20181004
  Transmission Date: 20190204
  Serious: Yes (Other)
  Sender: FDA-Public Use
  Company Number: JP-GUERBET-JP-20180209

PATIENT

DRUGS (2)
  1. UNKNOWNDRUG [Concomitant]
     Active Substance: UNSPECIFIED INGREDIENT
     Indication: ANTICOAGULANT THERAPY
     Route: 048
  2. LIPIODOL [Suspect]
     Active Substance: ETHIODIZED OIL
     Indication: PHOTODYNAMIC DIAGNOSTIC PROCEDURE
     Dosage: 0.25-0.5 ML PER INJECTION OVER 4-8 SEPARATE INJECTIONS
     Route: 050

REACTIONS (2)
  - Haematuria [Unknown]
  - Product use in unapproved indication [Unknown]
